FAERS Safety Report 8027979-3 (Version None)
Quarter: 2012Q1

REPORT INFORMATION
  Report Type: 
  Country: None (occurrence: None)
  Receive Date: 20120106
  Receipt Date: 20111227
  Transmission Date: 20120608
  Serious: Yes (Hospitalization, Other)
  Sender: FDA-Public Use
  Company Number: US-ELI_LILLY_AND_COMPANY-US201107003916

PATIENT
  Sex: Male

DRUGS (11)
  1. HYDROCODONE [Concomitant]
  2. DIAZEPAM [Concomitant]
  3. FORTEO [Suspect]
     Dosage: 20 UG, QD
     Route: 058
  4. METFORMIN HCL [Concomitant]
  5. VITAMIN D [Concomitant]
  6. FISH OIL [Concomitant]
  7. SIMVASTATIN [Concomitant]
  8. PRIMIDONE [Concomitant]
  9. AMLODIPINE [Concomitant]
  10. FORTEO [Suspect]
     Indication: OSTEOPOROSIS
     Dosage: 20 UG, QD
     Route: 058
     Dates: start: 20100901
  11. LISINOPRIL [Concomitant]

REACTIONS (5)
  - BALANCE DISORDER [None]
  - HIP FRACTURE [None]
  - FALL [None]
  - ASTHENIA [None]
  - DECUBITUS ULCER [None]
